FAERS Safety Report 19236161 (Version 2)
Quarter: 2021Q2

REPORT INFORMATION
  Report Type: Other
  Country: RO (occurrence: RO)
  Receive Date: 20210510
  Receipt Date: 20210519
  Transmission Date: 20210717
  Serious: Yes (Hospitalization)
  Sender: FDA-Public Use
  Company Number: RO-ROCHE-2819755

PATIENT
  Age: 45 Year
  Sex: Female

DRUGS (10)
  1. MYCOPHENOLATE MOFETIL. [Suspect]
     Active Substance: MYCOPHENOLATE MOFETIL
     Indication: SCLERODERMA
     Route: 065
  2. AZATHIOPRINE. [Concomitant]
     Active Substance: AZATHIOPRINE
  3. DOBUTAMINE [Concomitant]
     Active Substance: DOBUTAMINE HYDROCHLORIDE
  4. PENTOXIFYLLINE. [Concomitant]
     Active Substance: PENTOXIFYLLINE
  5. PREDNISONE. [Concomitant]
     Active Substance: PREDNISONE
  6. FUROSEMIDE. [Concomitant]
     Active Substance: FUROSEMIDE
  7. CYCLOPHOSPHAMIDE. [Suspect]
     Active Substance: CYCLOPHOSPHAMIDE
     Indication: SCLERODERMA
     Route: 065
  8. NEBIVOLOL. [Concomitant]
     Active Substance: NEBIVOLOL
  9. CARVEDILOL. [Concomitant]
     Active Substance: CARVEDILOL
  10. ALPROSTADIL. [Concomitant]
     Active Substance: ALPROSTADIL

REACTIONS (2)
  - COVID-19 [Recovered/Resolved]
  - Off label use [Unknown]
